FAERS Safety Report 6026636-2 (Version None)
Quarter: 2008Q4

REPORT INFORMATION
  Report Type: 
  Country: None (occurrence: None)
  Receive Date: 20081231
  Receipt Date: 20081218
  Transmission Date: 20090506
  Serious: Yes (Hospitalization)
  Sender: FDA-Public Use
  Company Number: KV200801265

PATIENT
  Age: 88 Year
  Sex: Male
  Weight: 75.7 kg

DRUGS (2)
  1. PROPAFENONE HCL [Suspect]
     Indication: CORONARY ARTERY BYPASS
     Dosage: 150 MG, BID, ORAL
     Route: 048
     Dates: start: 20060101
  2. PROPAFENONE HCL [Suspect]
     Indication: VASCULAR GRAFT
     Dosage: 150 MG, BID, ORAL
     Route: 048
     Dates: start: 20060101

REACTIONS (3)
  - DISORIENTATION [None]
  - HYPOTENSION [None]
  - PRODUCT QUALITY ISSUE [None]
